FAERS Safety Report 7809214-1 (Version None)
Quarter: 2011Q4

REPORT INFORMATION
  Report Type: 
  Country: None (occurrence: None)
  Receive Date: 20111012
  Receipt Date: 20110929
  Transmission Date: 20120403
  Serious: Yes (Hospitalization)
  Sender: FDA-Public Use
  Company Number: JP-UCBSA-038988

PATIENT
  Age: 62 Year
  Sex: Female

DRUGS (14)
  1. CERTOLIZUMAB PEGOL [Suspect]
     Route: 058
     Dates: start: 20100202, end: 20110118
  2. OMEPRAZOLE [Concomitant]
     Dosage: DAILY DOSE:10MG
  3. REBAMIPIDE [Concomitant]
     Dosage: DAILY DOSE:300MG
  4. OLOPATADINE HYDROCHLORIDE [Concomitant]
     Dosage: DAILY DOSE:10MG
     Dates: start: 20110720
  5. AROTINOLOL HYDROCHLORIDE [Concomitant]
     Dosage: DAILY DOSE:10MG
  6. NIFEDIPINE [Concomitant]
     Dosage: TOTAL DAILY DOSE: 40 MG
  7. MELOXICAM [Concomitant]
     Dosage: DAILY DOSE:10MG
     Dates: start: 20110330, end: 20110816
  8. PREDNISOLONE [Concomitant]
     Dosage: DAILY DOSE:3MG
     Dates: start: 20110202
  9. FOLIC ACID [Concomitant]
  10. METHOTREXATE [Concomitant]
     Dosage: DIVIDED INTO THREE
  11. CERTOLIZUMAB PEGOL [Suspect]
     Indication: RHEUMATOID ARTHRITIS
     Route: 058
     Dates: start: 20110201
  12. IRBESARTAN [Concomitant]
     Dosage: DAILY DOSE:100MG
  13. DIPYRIDAMOLE [Concomitant]
     Dosage: DAILY DOSE:150MG
  14. AMBROXOL HYDROCHLORIDE [Concomitant]
     Dosage: DAILY DOSE:45MG
     Dates: start: 20110621

REACTIONS (1)
  - PNEUMONIA [None]
